FAERS Safety Report 4602933-X (Version None)
Quarter: 2005Q1

REPORT INFORMATION
  Report Type: 
  Country: None (occurrence: None)
  Receive Date: 20050307
  Receipt Date: 20050218
  Transmission Date: 20050727
  Serious: Yes (Hospitalization)
  Sender: FDA-Public Use
  Company Number: 10335

PATIENT
  Sex: Female

DRUGS (13)
  1. METHOTREXATE [Suspect]
     Indication: JUVENILE ARTHRITIS
     Dosage: SEE IMAGE
     Route: 058
     Dates: start: 19950101, end: 19970801
  2. METHOTREXATE [Suspect]
     Indication: JUVENILE ARTHRITIS
     Dosage: SEE IMAGE
     Route: 058
     Dates: start: 19980601, end: 19980801
  3. METHOTREXATE [Suspect]
     Indication: JUVENILE ARTHRITIS
     Dosage: SEE IMAGE
     Route: 058
     Dates: start: 19980801, end: 19981101
  4. METHOTREXATE [Suspect]
     Indication: JUVENILE ARTHRITIS
     Dosage: SEE IMAGE
     Route: 058
     Dates: start: 19981101, end: 19990501
  5. METHOTREXATE [Suspect]
     Indication: JUVENILE ARTHRITIS
     Dosage: SEE IMAGE
     Route: 058
     Dates: start: 19971001, end: 19990601
  6. METHOTREXATE [Suspect]
     Indication: JUVENILE ARTHRITIS
     Dosage: SEE IMAGE
     Route: 058
     Dates: start: 19990501, end: 20010404
  7. METHOTREXATE [Suspect]
     Indication: JUVENILE ARTHRITIS
     Dosage: SEE IMAGE
     Route: 058
     Dates: start: 20010404, end: 20010409
  8. METHOTREXATE [Suspect]
     Indication: JUVENILE ARTHRITIS
     Dosage: SEE IMAGE
     Route: 058
     Dates: start: 20020409, end: 20030212
  9. CORTICOSTEROIDS [Concomitant]
  10. NAPROXEN [Concomitant]
  11. FOLIC ACID [Concomitant]
  12. IBUPROFEN [Concomitant]
  13. ONDANSETRON [Concomitant]

REACTIONS (6)
  - ALANINE AMINOTRANSFERASE INCREASED [None]
  - EOSINOPHILIA [None]
  - HAEMATURIA [None]
  - HEPATIC STEATOSIS [None]
  - INFLAMMATION [None]
  - LIVER DISORDER [None]
